FAERS Safety Report 13999586 (Version 1)
Quarter: 2017Q3

REPORT INFORMATION
  Report Type: Report from Study
  Country: GB (occurrence: GB)
  Receive Date: 20170922
  Receipt Date: 20170922
  Transmission Date: 20171128
  Serious: Yes (Hospitalization, Other)
  Sender: FDA-Public Use
  Company Number: GB-IPSEN BIOPHARMACEUTICALS, INC.-2017-10917

PATIENT
  Sex: Female

DRUGS (1)
  1. SOMATULINE AUTOGEL 120MG [Suspect]
     Active Substance: LANREOTIDE ACETATE
     Indication: PRODUCT USED FOR UNKNOWN INDICATION
     Dosage: 120 MG
     Route: 058

REACTIONS (14)
  - Hypertension [Recovering/Resolving]
  - Diabetes mellitus [Not Recovered/Not Resolved]
  - Hospitalisation [Recovered/Resolved]
  - Inappropriate schedule of drug administration [Unknown]
  - Stent placement [Not Recovered/Not Resolved]
  - Malaise [Not Recovered/Not Resolved]
  - Diarrhoea [Unknown]
  - Dizziness [Unknown]
  - Asthenia [Not Recovered/Not Resolved]
  - Decreased appetite [Not Recovered/Not Resolved]
  - Groin pain [Not Recovered/Not Resolved]
  - Cerebrovascular accident [Unknown]
  - Kidney infection [Unknown]
  - Vomiting [Unknown]

NARRATIVE: CASE EVENT DATE: 2017
